FAERS Safety Report 19099167 (Version 2)
Quarter: 2021Q2

REPORT INFORMATION
  Report Type: Report from Study
  Country: US (occurrence: US)
  Receive Date: 20210406
  Receipt Date: 20210430
  Transmission Date: 20210717
  Serious: Yes (Other)
  Sender: FDA-Public Use
  Company Number: US-TAKEDA-2021TUS020956

PATIENT
  Sex: Female

DRUGS (1)
  1. HUMAN NORMAL IMMUNOGLOBULIN; LIQUID [Suspect]
     Active Substance: HUMAN IMMUNOGLOBULIN G
     Indication: HYPOGAMMAGLOBULINAEMIA
     Dosage: UNK
     Route: 042

REACTIONS (7)
  - Knee operation [Unknown]
  - Heart rate abnormal [Unknown]
  - Incorrect drug administration rate [Unknown]
  - Joint swelling [Unknown]
  - Cardiovascular disorder [Unknown]
  - Migraine [Unknown]
  - Infection [Unknown]
